FAERS Safety Report 16472494 (Version 3)
Quarter: 2019Q3

REPORT INFORMATION
  Report Type: Spontaneous
  Country: JP (occurrence: JP)
  Receive Date: 20190625
  Receipt Date: 20190703
  Transmission Date: 20191004
  Serious: Yes (Other)
  Sender: FDA-Public Use
  Company Number: JP-SA-2019SA155640

PATIENT
  Age: 69 Year
  Sex: Female

DRUGS (2)
  1. RAMUCIRUMAB [Suspect]
     Active Substance: RAMUCIRUMAB
     Indication: LUNG ADENOCARCINOMA
     Dosage: 10 MG/KG, Q3W
     Route: 042
  2. DOCETAXEL. [Suspect]
     Active Substance: DOCETAXEL
     Indication: LUNG ADENOCARCINOMA
     Dosage: 60 MG/M2, Q3W
     Route: 042

REACTIONS (6)
  - Oedema peripheral [Unknown]
  - Pleural effusion [Unknown]
  - Ascites [Not Recovered/Not Resolved]
  - Weight increased [Unknown]
  - Chylothorax [Not Recovered/Not Resolved]
  - Therapeutic response decreased [Unknown]
